FAERS Safety Report 10156892 (Version 2)
Quarter: 2014Q2

REPORT INFORMATION
  Report Type: Report from Study
  Country: US (occurrence: US)
  Receive Date: 20140507
  Receipt Date: 20140604
  Transmission Date: 20141212
  Serious: Yes (Hospitalization)
  Sender: FDA-Public Use
  Company Number: US-ROCHE-1392486

PATIENT
  Age: 83 Year
  Sex: Female
  Weight: 45.85 kg

DRUGS (1)
  1. ERIVEDGE [Suspect]
     Indication: BASAL CELL CARCINOMA
     Dosage: HELD DUE TO CONGESTIVE HEART FAILURE
     Route: 048

REACTIONS (6)
  - Cardiac failure congestive [Recovering/Resolving]
  - Pulmonary oedema [Recovered/Resolved]
  - Dysphagia [Unknown]
  - Hypersensitivity [Unknown]
  - Cough [Unknown]
  - Dysphonia [Unknown]
